FAERS Safety Report 8524298-3 (Version None)
Quarter: 2012Q2

REPORT INFORMATION
  Report Type: 
  Country: None (occurrence: None)
  Receive Date: 20120406
  Receipt Date: 20120117
  Transmission Date: 20120825
  Serious: Yes (Hospitalization)
  Sender: FDA-Public Use
  Company Number: US-CYPER-2011-000039

PATIENT
  Sex: Female
  Weight: 74 kg

DRUGS (17)
  1. ASPIRIN [Suspect]
     Indication: CORONARY ARTERY DISEASE
     Dosage: 325 MG QD ORAL
     Route: 048
     Dates: start: 20091001
  2. METOPROLOL SUCCINATE [Concomitant]
  3. VITAMIN E [Concomitant]
  4. ZINC SULFATE [Concomitant]
  5. AMLODIPINE [Concomitant]
  6. ATORVASTATIN [Concomitant]
  7. IMDUR [Concomitant]
  8. CLOPIDOGREL [Suspect]
     Indication: ANTIPLATELET THERAPY
     Dosage: 75 MG QD ORAL, 225 MG ORAL. 75 MG ORAL
     Route: 048
     Dates: start: 20110709, end: 20110711
  9. CLOPIDOGREL [Suspect]
     Indication: ANTIPLATELET THERAPY
     Dosage: 75 MG QD ORAL, 225 MG ORAL. 75 MG ORAL
     Route: 048
     Dates: start: 20110713
  10. CLOPIDOGREL [Suspect]
     Indication: ANTIPLATELET THERAPY
     Dosage: 75 MG QD ORAL, 225 MG ORAL. 75 MG ORAL
     Route: 048
     Dates: start: 20110713, end: 20110713
  11. LISINOPRIL [Concomitant]
  12. CYPHER STENT [Concomitant]
  13. CLOPIDOGREL [Suspect]
     Indication: ANTIPLATELET THERAPY
     Dosage: 75 MG QD ORAL
     Route: 048
     Dates: start: 20110203, end: 20110707
  14. NEURONTIN [Concomitant]
  15. ZOCOR [Concomitant]
  16. REFRESH TEARS LUBRICANT [Concomitant]
  17. SUPER C [Concomitant]

REACTIONS (2)
  - CORONARY ARTERY OCCLUSION [None]
  - SICK SINUS SYNDROME [None]
